FAERS Safety Report 5935274-9 (Version None)
Quarter: 2008Q4

REPORT INFORMATION
  Report Type: 
  Country: None (occurrence: None)
  Receive Date: 20081020
  Receipt Date: 20080630
  Transmission Date: 20090506
  Serious: Yes (Other)
  Sender: FDA-Public Use
  Company Number: US-WYE-H04910108

PATIENT
  Age: 65 Year
  Sex: Male

DRUGS (3)
  1. ADVIL PM [Suspect]
     Indication: INSOMNIA
     Dosage: 1  CAPSULE 1X PER 1 DAY, ORAL
     Route: 048
     Dates: start: 20080627, end: 20080628
  2. ADVIL PM [Suspect]
     Indication: PAIN
     Dosage: 1  CAPSULE 1X PER 1 DAY, ORAL
     Route: 048
     Dates: start: 20080627, end: 20080628
  3. ACETYLSALICYLIC ACID SRT [Concomitant]

REACTIONS (1)
  - CHEST DISCOMFORT [None]
